FAERS Safety Report 10977895 (Version 2)
Quarter: 2015Q2

REPORT INFORMATION
  Report Type: Spontaneous
  Country: US (occurrence: None)
  Receive Date: 20150331
  Receipt Date: 20150423
  Transmission Date: 20150821
  Serious: Yes (Hospitalization)
  Sender: FDA-Public Use
  Company Number: COM-003051

PATIENT
  Age: 77 Year
  Sex: Female
  Weight: 59.42 kg

DRUGS (11)
  1. LIPITOR [Concomitant]
     Active Substance: ATORVASTATIN CALCIUM
  2. ALBUTEROL INHALER [Concomitant]
     Active Substance: ALBUTEROL
  3. ASPIRIN. [Concomitant]
     Active Substance: ASPIRIN
  4. IBUPROFEN. [Concomitant]
     Active Substance: IBUPROFEN
  5. MAGNESIUM CITRATE. [Suspect]
     Active Substance: MAGNESIUM CITRATE
     Indication: CONSTIPATION
     Dosage: 1/2 BOTTLE, TWICE, ORAL
     Route: 048
     Dates: start: 20150318, end: 20150319
  6. OMEPRAZOLE. [Concomitant]
     Active Substance: OMEPRAZOLE
  7. FISH OIL [Concomitant]
     Active Substance: FISH OIL
  8. LISINOPRIL. [Concomitant]
     Active Substance: LISINOPRIL
  9. CALTRATE [Concomitant]
     Active Substance: CALCIUM CARBONATE
  10. METOPROLOL [Concomitant]
     Active Substance: METOPROLOL
  11. FORADIL INHALER [Concomitant]

REACTIONS (4)
  - Abdominal pain [None]
  - Drug effect decreased [None]
  - Cervix disorder [None]
  - Pain [None]

NARRATIVE: CASE EVENT DATE: 20150318
